FAERS Safety Report 16359956 (Version 1)
Quarter: 2019Q2

REPORT INFORMATION
  Report Type: Spontaneous
  Country: DE (occurrence: DE)
  Receive Date: 20190528
  Receipt Date: 20190528
  Transmission Date: 20190711
  Serious: Yes (Hospitalization, Other)
  Sender: FDA-Public Use
  Company Number: DE-TEVA-2019-DE-1054816

PATIENT
  Age: 29 Year
  Sex: Male

DRUGS (5)
  1. GASTROZEPIN [Concomitant]
     Active Substance: PIRENZEPINE HYDROCHLORIDE
     Dosage: 100 MILLIGRAM DAILY;
     Route: 065
     Dates: start: 200808
  2. LORAZEPAM. [Concomitant]
     Active Substance: LORAZEPAM
     Dosage: 1 MILLIGRAM DAILY;
     Route: 065
     Dates: start: 200806
  3. CLOZAPIN [Interacting]
     Active Substance: CLOZAPINE
     Dosage: 900 MILLIGRAM DAILY;
     Route: 065
     Dates: start: 200808, end: 200810
  4. PANTOPRAZOL ABZ [Concomitant]
     Active Substance: PANTOPRAZOLE SODIUM
     Dosage: 20 MILLIGRAM DAILY;
     Route: 065
     Dates: start: 200803
  5. ARIPIPRAZOL [Suspect]
     Active Substance: ARIPIPRAZOLE
     Dosage: 20 MILLIGRAM DAILY;
     Route: 065

REACTIONS (2)
  - Drug interaction [Unknown]
  - Epilepsy [Recovered/Resolved]

NARRATIVE: CASE EVENT DATE: 20081008
